FAERS Safety Report 17436115 (Version 1)
Quarter: 2020Q1

REPORT INFORMATION
  Report Type: Spontaneous
  Country: CN (occurrence: CN)
  Receive Date: 20200219
  Receipt Date: 20200219
  Transmission Date: 20200409
  Serious: Yes (Hospitalization)
  Sender: FDA-Public Use
  Company Number: CN-BAXTER-2020BAX003329

PATIENT
  Age: 26 Year
  Sex: Male
  Weight: 68 kg

DRUGS (15)
  1. HEMEIXIN [Suspect]
     Active Substance: TOPOTECAN HYDROCHLORIDE
     Dosage: DOSE RE-INTRODUCED, HEMEIXIN + 0.9% SODIUM CHLORIDE
     Route: 041
     Dates: start: 202002
  2. ENDOXAN [Suspect]
     Active Substance: CYCLOPHOSPHAMIDE
     Dosage: DOSE RE-INTRODUCED, ENDOXAN+ 0.9% SODIUM CHLORIDE
     Route: 041
     Dates: start: 202002
  3. 0.9% SODIUM CHLORIDE INJECTION [Suspect]
     Active Substance: SODIUM CHLORIDE
     Dosage: ONDANSETRON HYDROCHLORIDE + 0.9% SODIUM CHLORIDE, DOSE RE-INTRODUCED
     Route: 041
     Dates: start: 202002
  4. ENDOXAN [Suspect]
     Active Substance: CYCLOPHOSPHAMIDE
     Indication: NEUROBLASTOMA RECURRENT
     Dosage: ENDOXAN 438 MG+ 0.9% SODIUM CHLORIDE 105 ML, DAY 1 TO DAY 5
     Route: 041
     Dates: start: 20200131, end: 20200204
  5. 0.9% SODIUM CHLORIDE INJECTION [Suspect]
     Active Substance: SODIUM CHLORIDE
     Indication: MEDICATION DILUTION
     Dosage: ENDOXAN 438 MG+ 0.9% SODIUM CHLORIDE 105 ML, DAY 1 TO DAY 5
     Route: 041
     Dates: start: 20200131, end: 20200204
  6. 0.9% SODIUM CHLORIDE INJECTION [Suspect]
     Active Substance: SODIUM CHLORIDE
     Dosage: ONDANSETRON HYDROCHLORIDE 8 MG+ 0.9% SODIUM CHLORIDE 25 ML
     Route: 041
     Dates: start: 20200131, end: 20200204
  7. ONDANSETRON HYDROCHLORIDE. [Suspect]
     Active Substance: ONDANSETRON HYDROCHLORIDE
     Indication: ANTIEMETIC SUPPORTIVE CARE
     Dosage: ONDANSETRON HYDROCHLORIDE 8 MG+ 0.9% SODIUM CHLORIDE 25 ML
     Route: 041
     Dates: start: 20200131, end: 20200204
  8. 0.9% SODIUM CHLORIDE INJECTION [Suspect]
     Active Substance: SODIUM CHLORIDE
     Dosage: HEMEIXIN 1.30 MG+ 0.9% SODIUM CHLORIDE 50 ML, DAY 1 TO DAY 5
     Route: 041
     Dates: start: 20200131, end: 20200204
  9. 0.9% SODIUM CHLORIDE INJECTION [Suspect]
     Active Substance: SODIUM CHLORIDE
     Dosage: DOSE RE-INTRODUCED, HEMEIXIN + 0.9% SODIUM CHLORIDE
     Route: 041
     Dates: start: 202002
  10. CHLORPHENAMINE MALEATE [Concomitant]
     Active Substance: CHLORPHENIRAMINE MALEATE
     Indication: ANTIALLERGIC THERAPY
     Dosage: BEFORE INFUSION
     Route: 041
     Dates: start: 20200204
  11. 0.9% SODIUM CHLORIDE INJECTION [Suspect]
     Active Substance: SODIUM CHLORIDE
     Dosage: DOSE RE-INTRODUCED, ENDOXAN + 0.9% SODIUM CHLORIDE
     Route: 041
     Dates: start: 202002
  12. HEMEIXIN [Suspect]
     Active Substance: TOPOTECAN HYDROCHLORIDE
     Indication: NEUROBLASTOMA RECURRENT
     Dosage: HEMEIXIN 1.30 MG+ 0.9% SODIUM CHLORIDE 50 ML, DAY 1 TO DAY 5
     Route: 041
     Dates: start: 20200131, end: 20200204
  13. ONDANSETRON HYDROCHLORIDE. [Suspect]
     Active Substance: ONDANSETRON HYDROCHLORIDE
     Dosage: ONDANSETRON HYDROCHLORIDE + 0.9% SODIUM CHLORIDE, DOSE RE-INTRODUCED
     Route: 041
     Dates: start: 202002
  14. MESNA. [Suspect]
     Active Substance: MESNA
     Indication: PROPHYLAXIS
     Route: 041
     Dates: start: 20200131, end: 20200204
  15. MESNA. [Suspect]
     Active Substance: MESNA
     Dosage: DOSE RE-INTRODUCED
     Route: 041
     Dates: start: 202002

REACTIONS (1)
  - Cytopenia [Recovering/Resolving]

NARRATIVE: CASE EVENT DATE: 20200204
